FAERS Safety Report 18851036 (Version 1)
Quarter: 2021Q1

REPORT INFORMATION
  Report Type: Spontaneous
  Country: FR (occurrence: FR)
  Receive Date: 20210205
  Receipt Date: 20210205
  Transmission Date: 20210420
  Serious: Yes (Hospitalization)
  Sender: FDA-Public Use
  Company Number: FR-HIKMA PHARMACEUTICALS USA INC.-FR-H14001-21-53555

PATIENT
  Age: 68 Year
  Sex: Male
  Weight: 115 kg

DRUGS (7)
  1. NEOSTIGMINE RENAUDIN [Suspect]
     Active Substance: NEOSTIGMINE METHYLSULFATE
     Indication: SURGERY
     Dates: start: 20200924, end: 20200924
  2. PROPOFOL LIPURO [Suspect]
     Active Substance: PROPOFOL
     Indication: ANAESTHESIA
     Route: 065
     Dates: start: 20200924, end: 20200924
  3. PERFALGAN [Suspect]
     Active Substance: ACETAMINOPHEN
     Indication: SURGERY
     Route: 065
     Dates: start: 20200924, end: 20200924
  4. SUFENTANIL MYLAN [Suspect]
     Active Substance: SUFENTANIL
     Indication: ANAESTHESIA
     Route: 065
     Dates: start: 20200924, end: 20200924
  5. DEXAMETHASONE MYLAN [Suspect]
     Active Substance: DEXAMETHASONE
     Indication: SURGERY
     Route: 065
     Dates: start: 20200924, end: 20200924
  6. ATRACURIUM HIKMA [Suspect]
     Active Substance: ATRACURIUM
     Indication: ANAESTHESIA
     Route: 065
     Dates: start: 20200924, end: 20200924
  7. CONTRAMAL [Suspect]
     Active Substance: TRAMADOL HYDROCHLORIDE
     Indication: SURGERY
     Route: 065
     Dates: start: 20200924, end: 20200924

REACTIONS (6)
  - Skin swelling [Recovered/Resolved]
  - Hypotension [Recovered/Resolved]
  - Hypothermia [Recovered/Resolved]
  - Anaphylactic shock [Recovered/Resolved]
  - Urticaria [Recovered/Resolved]
  - Pruritus [Recovered/Resolved]

NARRATIVE: CASE EVENT DATE: 20200924
